FAERS Safety Report 7913792-1 (Version None)
Quarter: 2011Q4

REPORT INFORMATION
  Report Type: 
  Country: None (occurrence: None)
  Receive Date: 20111110
  Receipt Date: 20111102
  Transmission Date: 20120403
  Serious: Yes (Life-Threatening)
  Sender: FDA-Public Use
  Company Number: 2011SP051956

PATIENT
  Age: 54 Year
  Sex: Female
  Weight: 153 kg

DRUGS (10)
  1. AVEENO /00302501/ [Concomitant]
  2. BOCEPREVIR [Suspect]
     Indication: HEPATITIS C
     Dosage: 800 MG;QD;PO, 800 MG;QD;PO
     Route: 048
     Dates: end: 20100811
  3. BOCEPREVIR [Suspect]
     Indication: HEPATITIS C
     Dosage: 800 MG;QD;PO, 800 MG;QD;PO
     Route: 048
     Dates: start: 20100818, end: 20101016
  4. ERYTHROPOIETIN [Suspect]
     Indication: ANAEMIA
     Dosage: QW;SC
     Route: 058
  5. INTERFERON [Suspect]
     Indication: HEPATITIS C
     Dosage: 80 MCG;SC, 80 MCG;SC
     Route: 058
     Dates: end: 20100811
  6. INTERFERON [Suspect]
     Indication: HEPATITIS C
     Dosage: 80 MCG;SC, 80 MCG;SC
     Route: 058
     Dates: start: 20100818, end: 20101016
  7. RIBAVIRIN [Suspect]
     Indication: HEPATITIS C
     Dosage: 1000 MG;QD;PO, 1000 MG;QD;PO
     Route: 048
     Dates: start: 20100818, end: 20101016
  8. RIBAVIRIN [Suspect]
     Indication: HEPATITIS C
     Dosage: 1000 MG;QD;PO, 1000 MG;QD;PO
     Route: 048
     Dates: end: 20100811
  9. TYLENOL (CAPLET) [Concomitant]
  10. EXTRA STRENGTH TYLENOL PM [Concomitant]

REACTIONS (1)
  - PANCYTOPENIA [None]
